FAERS Safety Report 8217754-9 (Version None)
Quarter: 2012Q1

REPORT INFORMATION
  Report Type: 
  Country: None (occurrence: None)
  Receive Date: 20120319
  Receipt Date: 20120312
  Transmission Date: 20120608
  Serious: Yes (Disabling, Other)
  Sender: FDA-Public Use
  Company Number: US-JNJFOC-20120107843

PATIENT
  Age: 63 Year
  Sex: Male

DRUGS (3)
  1. ZOCOR [Concomitant]
     Indication: HYPERLIPIDAEMIA
     Route: 065
  2. NUCYNTA [Suspect]
     Indication: PROCEDURAL PAIN
     Dosage: EVERY 9TH HOURLY AS PER NECESSARY
     Route: 048
     Dates: start: 20111222, end: 20111229
  3. NUCYNTA [Suspect]
     Dosage: 31 TABLETS IN 5 DAYS
     Route: 048

REACTIONS (4)
  - ANXIETY [None]
  - HYPERHIDROSIS [None]
  - RESTLESSNESS [None]
  - WITHDRAWAL SYNDROME [None]
